FAERS Safety Report 8659928 (Version 3)
Quarter: 2012Q4

REPORT INFORMATION
  Report Type: 
  Country: JP (occurrence: JP)
  Receive Date: 20120711
  Receipt Date: 20120905
  Transmission Date: 20130627
  Serious: Yes (Death, Other)
  Sender: FDA-Public Use
  Company Number: PHHY2012JP057132

PATIENT
  Age: 7 Year
  Sex: Female

DRUGS (14)
  1. EXJADE [Suspect]
     Indication: IRON OVERLOAD
     Route: 048
  2. L-PAM [Concomitant]
     Dosage: 70 mg/m2, QD
  3. FLUDARABINE [Concomitant]
     Dosage: 30 mg/m2, 6QD
  4. CYCLOPHOSPHAMIDE [Concomitant]
     Dosage: 50 mg/kg, QD
  5. ATG [Concomitant]
     Dosage: 1.25 mg/kg, per two days
  6. TACROLIMUS [Concomitant]
     Dosage: 0.02 mg/kg, QD
  7. METHOTREXATE [Concomitant]
     Dosage: 10 mg/m2,
  8. METHOTREXATE [Concomitant]
     Dosage: 7.5 mg/m2,
  9. METHOTREXATE [Concomitant]
     Dosage: 10 mg/m2,
  10. METHYLPREDNISOLONE [Concomitant]
     Dosage: 1 mg/kg, QD
  11. METHYLPREDNISOLONE [Concomitant]
     Dosage: 2 mg/kg, QD
  12. CYCLOSPORINE [Concomitant]
     Dosage: 3 mg/kg, QD
  13. INFLIXIMAB [Concomitant]
     Dosage: 5 mg/kg, BID
  14. ANTIALLERGIC AGENTS, EXCL CORTICOSTEROIDS [Concomitant]
     Indication: RASH
     Dosage: UNK UKN, UNK

REACTIONS (19)
  - Gastrointestinal haemorrhage [Fatal]
  - Melaena [Fatal]
  - Graft versus host disease [Unknown]
  - Viral infection [Unknown]
  - Renal failure [Unknown]
  - Ileus paralytic [Unknown]
  - Thrombotic microangiopathy [Unknown]
  - Febrile neutropenia [Unknown]
  - Anaemia [Unknown]
  - Gallbladder abscess [Unknown]
  - Inflammation [Not Recovered/Not Resolved]
  - C-reactive protein increased [Unknown]
  - Platelet count decreased [Unknown]
  - Pyrexia [Not Recovered/Not Resolved]
  - Abdominal distension [Unknown]
  - Rash [Recovering/Resolving]
  - Diarrhoea [Unknown]
  - Iron overload [None]
  - Bone marrow transplant [None]
